FAERS Safety Report 7380261-X (Version None)
Quarter: 2011Q1

REPORT INFORMATION
  Report Type: 
  Country: None (occurrence: None)
  Receive Date: 20110329
  Receipt Date: 20110318
  Transmission Date: 20110831
  Serious: No
  Sender: FDA-Public Use
  Company Number: US-US-EMD SERONO, INC.-7044300

PATIENT
  Sex: Male
  Weight: 77 kg

DRUGS (4)
  1. REBIF [Suspect]
     Indication: MULTIPLE SCLEROSIS
     Route: 058
     Dates: start: 20110224
  2. PRAVACHOL [Concomitant]
  3. TRAZODONE [Concomitant]
  4. TAGAMET [Concomitant]

REACTIONS (2)
  - DRUG ADMINISTRATION ERROR [None]
  - INFLUENZA LIKE ILLNESS [None]
